FAERS Safety Report 8900806 (Version 3)
Quarter: 2014Q2

REPORT INFORMATION
  Report Type: Report from Study
  Country: US (occurrence: US)
  Receive Date: 20121109
  Receipt Date: 20140424
  Transmission Date: 20141212
  Serious: Yes (Other)
  Sender: FDA-Public Use
  Company Number: US-ROCHE-1153442

PATIENT
  Age: 40 Year
  Sex: Female

DRUGS (5)
  1. OMALIZUMAB [Suspect]
     Indication: ASTHMA
     Dosage: LAST DOSE PRIOR TO THE EVENT RECEIVED ON 26/JUL/2012, 315 MG
     Route: 065
     Dates: start: 20060324
  2. VENTOLIN [Concomitant]
     Indication: ASTHMA
     Route: 065
  3. XOPENEX HFA [Concomitant]
     Indication: ASTHMA
  4. LEXAPRO [Concomitant]
     Indication: ANXIETY
     Route: 048
  5. LAMICTAL [Concomitant]
     Indication: ANXIETY
     Route: 048

REACTIONS (1)
  - Pericarditis [Recovered/Resolved]
